FAERS Safety Report 16940828 (Version 1)
Quarter: 2019Q4

REPORT INFORMATION
  Report Type: Report from Study
  Country: US (occurrence: US)
  Receive Date: 20191021
  Receipt Date: 20191021
  Transmission Date: 20200122
  Serious: Yes (Death, Hospitalization, Other)
  Sender: FDA-Public Use
  Company Number: US-ASTRAZENECA-2017SE55270

PATIENT
  Sex: Male
  Weight: 69.4 kg

DRUGS (4)
  1. TAGRISSO [Suspect]
     Active Substance: OSIMERTINIB
     Indication: NON-SMALL CELL LUNG CANCER
     Route: 048
     Dates: start: 20170513
  2. TAGRISSO [Suspect]
     Active Substance: OSIMERTINIB
     Indication: NON-SMALL CELL LUNG CANCER
     Dosage: EVERY OTHER DAY
     Route: 048
  3. TAGRISSO [Suspect]
     Active Substance: OSIMERTINIB
     Indication: LUNG NEOPLASM MALIGNANT
     Route: 048
     Dates: start: 20170513
  4. TAGRISSO [Suspect]
     Active Substance: OSIMERTINIB
     Indication: LUNG NEOPLASM MALIGNANT
     Dosage: EVERY OTHER DAY
     Route: 048

REACTIONS (6)
  - Peripheral swelling [Unknown]
  - Dyspnoea [Unknown]
  - Constipation [Unknown]
  - Death [Fatal]
  - Malignant neoplasm progression [Unknown]
  - Drug ineffective [Unknown]
